FAERS Safety Report 8290568-X (Version None)
Quarter: 2012Q2

REPORT INFORMATION
  Report Type: 
  Country: None (occurrence: None)
  Receive Date: 20120417
  Receipt Date: 20110401
  Transmission Date: 20120825
  Serious: No
  Sender: FDA-Public Use
  Company Number: US-ASTRAZENECA-2011SE18643

PATIENT
  Age: 80 Year
  Sex: Female
  Weight: 72.6 kg

DRUGS (5)
  1. BLOOD PRESSURE MEDICATION [Concomitant]
  2. GLUCOSAMINE [Concomitant]
  3. NEXIUM [Suspect]
     Route: 048
     Dates: start: 20070101
  4. CALCIUM CARBONATE [Concomitant]
  5. VITAMIN E [Concomitant]

REACTIONS (3)
  - INAPPROPRIATE SCHEDULE OF DRUG ADMINISTRATION [None]
  - ABDOMINAL PAIN UPPER [None]
  - DIARRHOEA [None]
